FAERS Safety Report 5303677-1 (Version None)
Quarter: 2007Q2

REPORT INFORMATION
  Report Type: 
  Country: None (occurrence: None)
  Receive Date: 20070420
  Receipt Date: 20070410
  Transmission Date: 20071010
  Serious: Yes (Hospitalization, Other)
  Sender: FDA-Public Use
  Company Number: US-PFIZER INC-2007005377

PATIENT
  Sex: Female
  Weight: 60.3 kg

DRUGS (1)
  1. BEXTRA [Suspect]
     Indication: ARTHRITIS
     Route: 048

REACTIONS (4)
  - AMNESIA [None]
  - ANGINA PECTORIS [None]
  - ANXIETY [None]
  - MYOCARDIAL INFARCTION [None]
